FAERS Safety Report 15814465 (Version 2)
Quarter: 2019Q1

REPORT INFORMATION
  Report Type: Report from Study
  Country: US (occurrence: US)
  Receive Date: 20190111
  Receipt Date: 20190122
  Transmission Date: 20190417
  Serious: Yes (Other)
  Sender: FDA-Public Use
  Company Number: US-PFIZER INC-2019012135

PATIENT
  Age: 14 Year
  Sex: Male
  Weight: 91 kg

DRUGS (12)
  1. CYTARABINE. [Suspect]
     Active Substance: CYTARABINE
     Indication: ANAPLASTIC LARGE-CELL LYMPHOMA
     Dosage: 150 MG/M2, OVER 1-30 MINUTES Q12 HOURS ON DAYS 4 AND 5 (TOTAL 4 DOSES)
     Route: 042
     Dates: start: 20181229, end: 20181231
  2. CYCLOPHOSPHAMIDE. [Concomitant]
     Active Substance: CYCLOPHOSPHAMIDE
     Indication: ANAPLASTIC LARGE-CELL LYMPHOMA
     Dosage: 200 MG/M2, OVER 15-30 MINUTES ON DAYS 1-5
     Route: 042
  3. CYTARABINE. [Suspect]
     Active Substance: CYTARABINE
     Dosage: PROPHASE (CYCLE = 5 DAYS): 15-24MG IT ON DAY 1 (AGE BASED DOSING)
     Route: 037
  4. DEXAMETHASONE. [Concomitant]
     Active Substance: DEXAMETHASONE
     Indication: ANAPLASTIC LARGE-CELL LYMPHOMA
     Dosage: 5 MG/M2,BID ON DAYS 1-5
     Route: 048
     Dates: start: 20181226, end: 20181231
  5. METHOTREXATE SODIUM. [Suspect]
     Active Substance: METHOTREXATE SODIUM
     Indication: ANAPLASTIC LARGE-CELL LYMPHOMA
     Dosage: 3000 MG/M2, OVER 3 HOURS ON DAY 1
     Route: 042
     Dates: start: 20181226, end: 20181227
  6. DOXORUBICIN HCL [Suspect]
     Active Substance: DOXORUBICIN HYDROCHLORIDE
     Indication: ANAPLASTIC LARGE-CELL LYMPHOMA
     Dosage: 25 MG/M2, OVER 1-15 MIN ON DAYS 4 AND 5
     Route: 042
  7. CYCLOPHOSPHAMIDE. [Concomitant]
     Active Substance: CYCLOPHOSPHAMIDE
     Dosage: PROPHASE (CYCLE = 5 DAYS): 200MG/M2 IV OVER 15-30 MINUTES ON DAYS 1 AND 2
     Route: 042
  8. DEXAMETHASONE. [Concomitant]
     Active Substance: DEXAMETHASONE
     Dosage: PROPHASE (CYCLE = 5 DAYS): 5MG/M2 PO QD ON DAYS 1-2, AND 5MG/M2 PO BID ON DAYS 3-5
     Route: 048
  9. METHOTREXATE SODIUM. [Suspect]
     Active Substance: METHOTREXATE SODIUM
     Dosage: PROPHASE (CYCLE = 5 DAYS): 7.5-12MG IT ON DAY 1 (AGE BASED DOSING)
     Route: 037
  10. ETOPOSIDE. [Suspect]
     Active Substance: ETOPOSIDE
     Indication: ANAPLASTIC LARGE-CELL LYMPHOMA
     Dosage: 100 MG/M2, OVER 2 HOURS ON DAYS 4 AND 5
     Route: 042
     Dates: start: 20181229, end: 20181230
  11. IFOSFAMIDE. [Concomitant]
     Active Substance: IFOSFAMIDE
     Indication: ANAPLASTIC LARGE-CELL LYMPHOMA
     Dosage: 800 MG/M2, OVER 60 MIN ON DAYS 1-5
     Route: 042
     Dates: start: 20181226, end: 20181230
  12. CRIZOTINIB [Suspect]
     Active Substance: CRIZOTINIB
     Indication: ANAPLASTIC LARGE-CELL LYMPHOMA
     Dosage: 165 MG/M2, BID ON DAYS 1-21
     Route: 048

REACTIONS (1)
  - Alanine aminotransferase increased [Not Recovered/Not Resolved]

NARRATIVE: CASE EVENT DATE: 20190102
